FAERS Safety Report 8113496-9 (Version None)
Quarter: 2012Q1

REPORT INFORMATION
  Report Type: 
  Country: None (occurrence: None)
  Receive Date: 20120203
  Receipt Date: 20111003
  Transmission Date: 20120608
  Serious: Yes (Death, Hospitalization, Other)
  Sender: FDA-Public Use
  Company Number: SE-GENZYME-FLUD-1001389

PATIENT
  Sex: Female

DRUGS (19)
  1. CYCLOPHOSPHAMIDE [Suspect]
     Dosage: UNK; 5 CURES
     Route: 048
     Dates: end: 20110301
  2. MABTHERA [Suspect]
     Dosage: 800 MG, 4 TIMES
     Route: 042
  3. MABTHERA [Suspect]
     Dosage: 800 MG, 4 TIMES
     Route: 042
     Dates: end: 20110415
  4. EPREX [Concomitant]
     Indication: PRODUCT USED FOR UNKNOWN INDICATION
     Dosage: UNK
     Route: 065
  5. CYCLOPHOSPHAMIDE [Suspect]
     Dosage: UNK; 5 CURES
     Route: 048
  6. SPIRIVA [Concomitant]
     Indication: PRODUCT USED FOR UNKNOWN INDICATION
     Dosage: UNK
     Route: 055
  7. FLUDARA [Suspect]
     Dosage: UNK; 5 CURES
     Route: 048
  8. FLUDARA [Suspect]
     Dosage: UNK; 5 CURES
     Route: 048
  9. CYCLOPHOSPHAMIDE [Suspect]
     Indication: CHRONIC LYMPHOCYTIC LEUKAEMIA
     Dosage: UNK; 5 CURES
     Route: 048
     Dates: start: 20101101
  10. OXIS TURBUHALER [Concomitant]
     Indication: PRODUCT USED FOR UNKNOWN INDICATION
     Dosage: UNK
     Route: 055
  11. MABTHERA [Suspect]
     Dosage: 800 MG, 4 TIMES
     Route: 042
  12. FLUDARA [Suspect]
     Indication: CHRONIC LYMPHOCYTIC LEUKAEMIA
     Dosage: UNK; 5 CURES
     Route: 048
     Dates: start: 20101101
  13. CYCLOPHOSPHAMIDE [Suspect]
     Dosage: UNK; 5 CURES
     Route: 048
  14. MABTHERA [Suspect]
     Indication: CHRONIC LYMPHOCYTIC LEUKAEMIA
     Dosage: 800 MG, 4 TIMES
     Route: 042
     Dates: start: 20110113
  15. FLUDARA [Suspect]
     Dosage: UNK; 5 CURES
     Route: 048
  16. FLUDARA [Suspect]
     Dosage: UNK; 5 CURES
     Route: 048
     Dates: end: 20110301
  17. CYCLOPHOSPHAMIDE [Suspect]
     Dosage: UNK; 5 CURES
     Route: 048
  18. ACYCLOVIR [Concomitant]
     Indication: PRODUCT USED FOR UNKNOWN INDICATION
     Dosage: UNK
     Route: 065
  19. BACTRIM [Concomitant]
     Indication: PRODUCT USED FOR UNKNOWN INDICATION
     Dosage: 800 MG/160 MG
     Route: 048

REACTIONS (8)
  - COGNITIVE DISORDER [None]
  - HEMIPLEGIA [None]
  - PYREXIA [None]
  - ADVERSE DRUG REACTION [None]
  - JC VIRUS TEST POSITIVE [None]
  - DYSARTHRIA [None]
  - HEARING IMPAIRED [None]
  - PROGRESSIVE MULTIFOCAL LEUKOENCEPHALOPATHY [None]
